FAERS Safety Report 23239420 (Version 2)
Quarter: 2023Q4

REPORT INFORMATION
  Report Type: Spontaneous
  Country: US (occurrence: US)
  Receive Date: 20231129
  Receipt Date: 20231209
  Transmission Date: 20240109
  Serious: No
  Sender: FDA-Public Use
  Company Number: US-drreddys-SPO/USA/23/0183406

PATIENT
  Age: 55 Year
  Sex: Female

DRUGS (1)
  1. NYSTATIN [Suspect]
     Active Substance: NYSTATIN
     Indication: Product used for unknown indication
     Dosage: TOPICAL POWDER,USP,100,000 UNITES/GRAMS

REACTIONS (5)
  - Psoriasis [Unknown]
  - Condition aggravated [Unknown]
  - Liver function test increased [Unknown]
  - Drug ineffective [Unknown]
  - Product quality issue [Unknown]
